FAERS Safety Report 7576602-0 (Version None)
Quarter: 2011Q2

REPORT INFORMATION
  Report Type: 
  Country: None (occurrence: None)
  Receive Date: 20110624
  Receipt Date: 20110624
  Transmission Date: 20111010
  Serious: Yes (Hospitalization)
  Sender: FDA-Public Use
  Company Number: None

PATIENT
  Age: 60 Year
  Sex: Female
  Weight: 110.6777 kg

DRUGS (3)
  1. ERLOTINIB HYDROCHLORIDE [Suspect]
     Indication: BILE DUCT CANCER
     Dosage: 100MG DAILY X 6DAYS Q2WK
     Dates: start: 20110329
  2. OXALIPLATIN [Suspect]
     Indication: BILE DUCT CANCER
     Dosage: 85MG/M2 IV
     Route: 042
     Dates: start: 20110329
  3. GEMCITABINE [Suspect]
     Indication: BILE DUCT CANCER
     Dosage: 1000MG/M2 IV
     Route: 042
     Dates: start: 20110329

REACTIONS (2)
  - FATIGUE [None]
  - PAIN [None]
